FAERS Safety Report 5315938-0 (Version None)
Quarter: 2007Q2

REPORT INFORMATION
  Report Type: 
  Country: None (occurrence: None)
  Receive Date: 20070503
  Receipt Date: 20070419
  Transmission Date: 20071010
  Serious: Yes (Hospitalization)
  Sender: FDA-Public Use
  Company Number: JP-ROCHE-435737

PATIENT
  Age: 9 Year
  Sex: Male
  Weight: 34 kg

DRUGS (4)
  1. TAMIFLU [Suspect]
     Route: 048
     Dates: start: 20060206, end: 20060206
  2. CALONAL [Concomitant]
     Route: 048
     Dates: start: 20060206, end: 20060209
  3. CISDYNE [Concomitant]
     Route: 048
     Dates: start: 20060207, end: 20060213
  4. TIPEPIDINE HIBENZATE [Concomitant]
     Route: 048
     Dates: start: 20060207, end: 20060213

REACTIONS (3)
  - ABNORMAL BEHAVIOUR [None]
  - COAGULATION FACTOR VII LEVEL DECREASED [None]
  - DELIRIUM [None]
